FAERS Safety Report 8812067 (Version 2)
Quarter: 2012Q4

REPORT INFORMATION
  Report Type: 
  Country: US (occurrence: US)
  Receive Date: 20120927
  Receipt Date: 20121022
  Transmission Date: 20130627
  Serious: Yes (Death, Life-Threatening, Hospitalization)
  Sender: FDA-Public Use
  Company Number: US-ROCHE-1135986

PATIENT
  Sex: Male

DRUGS (5)
  1. AVASTIN [Suspect]
     Indication: NON-SMALL CELL LUNG CANCER
     Dosage: most recent dose prior to event on 18/Dec/2009
     Route: 065
  2. PEMETREXED [Suspect]
     Indication: NON-SMALL CELL LUNG CANCER
     Route: 042
     Dates: start: 20091119
  3. CARBOPLATIN [Suspect]
     Indication: NON-SMALL CELL LUNG CANCER
     Dosage: 6 AUC
     Route: 042
     Dates: start: 20091119
  4. LISINOPRIL [Concomitant]
     Route: 065
     Dates: start: 20091218
  5. FOLIC ACID [Concomitant]
     Route: 065
     Dates: start: 20091105

REACTIONS (6)
  - Respiratory failure [Fatal]
  - Sepsis [Not Recovered/Not Resolved]
  - Renal failure acute [Unknown]
  - Myocardial infarction [Unknown]
  - Cardiac failure congestive [Unknown]
  - Neutropenia [Unknown]
